FAERS Safety Report 5371180-9 (Version None)
Quarter: 2007Q2

REPORT INFORMATION
  Report Type: 
  Country: None (occurrence: None)
  Receive Date: 20070614
  Receipt Date: 20070327
  Transmission Date: 20071010
  Serious: No
  Sender: FDA-Public Use
  Company Number: BDI-009292

PATIENT
  Age: 37 Year
  Sex: Female

DRUGS (2)
  1. MULTIHANCE [Suspect]
     Indication: HYPOAESTHESIA
     Dosage: 14 ML ONCE IV
     Route: 042
     Dates: start: 20070206, end: 20070206
  2. MULTIHANCE [Suspect]
     Indication: NUCLEAR MAGNETIC RESONANCE IMAGING
     Dosage: 14 ML ONCE IV
     Route: 042
     Dates: start: 20070206, end: 20070206

REACTIONS (2)
  - PRURITUS [None]
  - THROAT IRRITATION [None]
